FAERS Safety Report 6528696-9 (Version None)
Quarter: 2009Q4

REPORT INFORMATION
  Report Type: 
  Country: None (occurrence: None)
  Receive Date: 20091222
  Receipt Date: 20091204
  Transmission Date: 20100525
  Serious: Yes (Death)
  Sender: FDA-Public Use
  Company Number: 2009SA002093

PATIENT
  Age: 66 Year
  Sex: Female

DRUGS (19)
  1. FLUDARABINE PHOSPHATE [Suspect]
     Indication: FOLLICLE CENTRE LYMPHOMA, FOLLICULAR GRADE I, II, III STAGE IV
     Dosage: 40 MILLIGRAM(S); DAILY; ORAL, 40 MILLIGRAM(S); DAILY; ORAL
     Route: 048
     Dates: start: 20090512, end: 20090516
  2. FLUDARABINE PHOSPHATE [Suspect]
     Indication: LYMPHOMA
     Dosage: 40 MILLIGRAM(S); DAILY; ORAL, 40 MILLIGRAM(S); DAILY; ORAL
     Route: 048
     Dates: start: 20090512, end: 20090516
  3. FLUDARABINE PHOSPHATE [Suspect]
     Indication: FOLLICLE CENTRE LYMPHOMA, FOLLICULAR GRADE I, II, III STAGE IV
     Dosage: 40 MILLIGRAM(S); DAILY; ORAL, 40 MILLIGRAM(S); DAILY; ORAL
     Route: 048
     Dates: start: 20090812, end: 20090816
  4. FLUDARABINE PHOSPHATE [Suspect]
     Indication: LYMPHOMA
     Dosage: 40 MILLIGRAM(S); DAILY; ORAL, 40 MILLIGRAM(S); DAILY; ORAL
     Route: 048
     Dates: start: 20090812, end: 20090816
  5. FLUDARA [Suspect]
     Indication: FOLLICLE CENTRE LYMPHOMA, FOLLICULAR GRADE I, II, III STAGE IV
     Dosage: 37 MILLIGRAM(S); DAILY, PARENTERAL
     Route: 051
     Dates: start: 20090612, end: 20090617
  6. FLUDARA [Suspect]
     Indication: LYMPHOMA
     Dosage: 37 MILLIGRAM(S); DAILY, PARENTERAL
     Route: 051
     Dates: start: 20090612, end: 20090617
  7. BEZATOL - SLOW RELEASE [Concomitant]
  8. GLAKAY [Concomitant]
  9. BONALON [Concomitant]
  10. VOLTAREN [Concomitant]
  11. TAKEPRON [Concomitant]
  12. BAKTAR [Concomitant]
  13. DIFLUCAN [Concomitant]
  14. PREDNISOLONE [Concomitant]
  15. CYCLOPHOSPHAMIDE [Concomitant]
  16. DOXORUBICIN HCL [Concomitant]
  17. VINCRISTINE [Concomitant]
  18. RITUXIMAB [Concomitant]
  19. PREV MEDS [Concomitant]

REACTIONS (2)
  - ACUTE GRAFT VERSUS HOST DISEASE [None]
  - DRUG EFFECT DECREASED [None]
